FAERS Safety Report 12220244 (Version 1)
Quarter: 2016Q1

REPORT INFORMATION
  Report Type: Spontaneous
  Country: US (occurrence: None)
  Receive Date: 20160329
  Receipt Date: 20160329
  Transmission Date: 20160526
  Serious: Yes (Death, Disabling)
  Sender: FDA-Public Use
  Company Number: None

PATIENT
  Age: 57 Year
  Sex: Male
  Weight: 70.2 kg

DRUGS (8)
  1. OXACILLIN, 2G [Suspect]
     Active Substance: OXACILLIN SODIUM
     Indication: STAPHYLOCOCCAL BACTERAEMIA
     Route: 040
     Dates: start: 20160215, end: 20160315
  2. AMPICILLIN [Concomitant]
     Active Substance: AMPICILLIN
  3. AZITHROMYCIN ANHYDROUS. [Concomitant]
     Active Substance: AZITHROMYCIN ANHYDROUS
  4. VANCO [Concomitant]
     Active Substance: VANCOMYCIN
  5. ZOSYN [Concomitant]
     Active Substance: PIPERACILLIN SODIUM\TAZOBACTAM SODIUM
  6. MEROPENEM. [Concomitant]
     Active Substance: MEROPENEM
  7. FLAGYL [Concomitant]
     Active Substance: METRONIDAZOLE\METRONIDAZOLE HYDROCHLORIDE
  8. ERTAPENEM [Concomitant]
     Active Substance: ERTAPENEM

REACTIONS (1)
  - Deafness [None]

NARRATIVE: CASE EVENT DATE: 20160306
